FAERS Safety Report 16909498 (Version 14)
Quarter: 2022Q3

REPORT INFORMATION
  Report Type: Report from Study
  Country: GB (occurrence: None)
  Receive Date: 20191011
  Receipt Date: 20220907
  Transmission Date: 20221027
  Serious: Yes (Hospitalization, Other)
  Sender: FDA-Public Use
  Company Number: GB-ROCHE-2422341

PATIENT
  Age: 41 Year
  Sex: Female
  Weight: 54.4 kg

DRUGS (6)
  1. ATEZOLIZUMAB [Suspect]
     Active Substance: ATEZOLIZUMAB
     Indication: Breast cancer
     Dosage: MOST RECENT DOSE ON 11/SEP/2019
     Route: 041
     Dates: start: 20190911
  2. IPATASERTIB [Suspect]
     Active Substance: IPATASERTIB
     Indication: Breast cancer
     Dosage: MOST RECENT DOSE ON 22/SEP/2019
     Route: 048
     Dates: start: 20190828
  3. TOCILIZUMAB [Concomitant]
     Active Substance: TOCILIZUMAB
     Indication: Product used for unknown indication
     Route: 065
     Dates: start: 20190925, end: 20190925
  4. AMOXICILLIN\CLAVULANATE POTASSIUM [Concomitant]
     Active Substance: AMOXICILLIN\CLAVULANATE POTASSIUM
     Indication: Infection
     Route: 048
     Dates: start: 20190922
  5. METHYLPREDNISOLONE [Concomitant]
     Active Substance: METHYLPREDNISOLONE
     Route: 042
     Dates: start: 20190923, end: 20190924
  6. PREDNISONE [Concomitant]
     Active Substance: PREDNISONE
     Dates: start: 20190925

REACTIONS (4)
  - Systemic immune activation [Recovered/Resolved with Sequelae]
  - Hepatitis [Recovered/Resolved]
  - Immune-mediated neuropathy [Recovering/Resolving]
  - Pyrexia [Not Recovered/Not Resolved]

NARRATIVE: CASE EVENT DATE: 20190922
